FAERS Safety Report 10398670 (Version 1)
Quarter: 2014Q1

REPORT INFORMATION
  Report Type: Spontaneous
  Country: US (occurrence: None)
  Receive Date: 20130815
  Receipt Date: 20130815
  Transmission Date: 20141002
  Serious: Yes (Hospitalization, Other)
  Sender: FDA-Public Use
  Company Number: ADR-2012-01217

PATIENT
  Sex: Male

DRUGS (2)
  1. LIORESAL INTRATHECAL (BACLOFEN INJECTION) [Suspect]
     Indication: MUSCLE SPASTICITY
     Dosage: (2000 MCG/ML) AT A DOSE RATE OF 440 MCG/ DAY
  2. LIORESAL INTRATHECAL (BACLOFEN INJECTION) [Suspect]
     Dosage: (2000 MCG/ML) AT A DOSE RATE OF 440 MCG/ DAY

REACTIONS (5)
  - Implant site erosion [None]
  - Citrobacter test positive [None]
  - Culture wound positive [None]
  - Staphylococcal infection [None]
  - Culture urine positive [None]
